FAERS Safety Report 20301168 (Version 2)
Quarter: 2022Q1

REPORT INFORMATION
  Report Type: Spontaneous
  Country: US (occurrence: US)
  Receive Date: 20220105
  Receipt Date: 20220204
  Transmission Date: 20220423
  Serious: No
  Sender: FDA-Public Use
  Company Number: US-SUNOVION-2021SUN004821

PATIENT
  Sex: Female

DRUGS (2)
  1. LATUDA [Suspect]
     Active Substance: LURASIDONE HYDROCHLORIDE
     Indication: Bipolar II disorder
     Dosage: UNK
     Route: 048
  2. LATUDA [Suspect]
     Active Substance: LURASIDONE HYDROCHLORIDE
     Dosage: 20 MG, QD
     Route: 048

REACTIONS (14)
  - Eating disorder [Unknown]
  - Heart rate increased [Unknown]
  - Feeling abnormal [Unknown]
  - Logorrhoea [Unknown]
  - Fear [Unknown]
  - Panic disorder [Unknown]
  - Palpitations [Unknown]
  - Thinking abnormal [Unknown]
  - Speech disorder [Unknown]
  - Mania [Unknown]
  - Increased appetite [Unknown]
  - Insomnia [Unknown]
  - Dyspnoea [Unknown]
  - Off label use [Unknown]
